FAERS Safety Report 6971901-5 (Version None)
Quarter: 2010Q3

REPORT INFORMATION
  Report Type: 
  Country: None (occurrence: None)
  Receive Date: 20100908
  Receipt Date: 20100908
  Transmission Date: 20110219
  Serious: Yes (Hospitalization)
  Sender: FDA-Public Use
  Company Number: None

PATIENT
  Sex: Female
  Weight: 48.6 kg

DRUGS (5)
  1. REVATIO [Suspect]
     Dosage: 20 MG P.O. T.I.D.
     Route: 048
     Dates: start: 20100803, end: 20100820
  2. LEVOTHYROXINE [Concomitant]
  3. NASACORT [Concomitant]
  4. ALBUTEROL [Concomitant]
  5. HUMALOG [Concomitant]

REACTIONS (1)
  - DISTAL ILEAL OBSTRUCTION SYNDROME [None]
